FAERS Safety Report 8431521-2 (Version None)
Quarter: 2012Q2

REPORT INFORMATION
  Report Type: 
  Country: None (occurrence: None)
  Receive Date: 20120607
  Receipt Date: 20120607
  Transmission Date: 20120825
  Serious: Yes (Hospitalization, Disabling)
  Sender: FDA-Public Use
  Company Number: None

PATIENT
  Age: 55 Year
  Sex: Female
  Weight: 77.1115 kg

DRUGS (1)
  1. DEPAKOTE [Suspect]
     Indication: CONVULSION
     Dosage: 150 MG 3 X TIME DAY
     Dates: start: 20070712

REACTIONS (10)
  - TREMOR [None]
  - DEAFNESS [None]
  - DYSPEPSIA [None]
  - VISION BLURRED [None]
  - DYSKINESIA [None]
  - EYE MOVEMENT DISORDER [None]
  - AMNESIA [None]
  - ANXIETY [None]
  - AGITATION [None]
  - GRIP STRENGTH DECREASED [None]
